FAERS Safety Report 5452240-0 (Version None)
Quarter: 2007Q3

REPORT INFORMATION
  Report Type: 
  Country: None (occurrence: None)
  Receive Date: 20070912
  Receipt Date: 20070912
  Transmission Date: 20080115
  Serious: No
  Sender: FDA-Public Use
  Company Number: None

PATIENT
  Age: 52 Year
  Sex: Female

DRUGS (1)
  1. CHANTIX [Suspect]
     Dosage: BID ORAL
     Route: 048
     Dates: start: 20070401

REACTIONS (3)
  - DIZZINESS [None]
  - PRURITUS [None]
  - SENSATION OF FOREIGN BODY [None]
